FAERS Safety Report 7137169-4 (Version None)
Quarter: 2010Q4

REPORT INFORMATION
  Report Type: 
  Country: None (occurrence: None)
  Receive Date: 20101206
  Receipt Date: 20070316
  Transmission Date: 20110411
  Serious: Yes (Death)
  Sender: FDA-Public Use
  Company Number: US-ACTELION-A-US2007-14664

PATIENT

DRUGS (11)
  1. ILOPROST INHALATION SOLUTION 5UG US [Suspect]
     Indication: COR PULMONALE CHRONIC
     Dosage: 5 UG, 5 X DAY
     Route: 055
     Dates: start: 20060426, end: 20070221
  2. PEPCID [Concomitant]
  3. LASIX [Concomitant]
  4. ADVAIR [Concomitant]
  5. PREMARIN [Concomitant]
  6. MAGNESIUM OXIDE [Concomitant]
  7. LIPITOR [Concomitant]
  8. LEVOTHYROXINE SODIUM [Concomitant]
  9. ATENOLOL [Concomitant]
  10. HECTOROL [Concomitant]
  11. SILDENAFIL [Concomitant]

REACTIONS (1)
  - DEATH [None]
